FAERS Safety Report 21984394 (Version 1)
Quarter: 2023Q1

REPORT INFORMATION
  Report Type: Spontaneous
  Country: US (occurrence: US)
  Receive Date: 20230213
  Receipt Date: 20230213
  Transmission Date: 20230417
  Serious: Yes (Other)
  Sender: FDA-Public Use
  Company Number: US-drreddys-SPO/USA/23/0160811

PATIENT
  Sex: Male

DRUGS (1)
  1. ATORVASTATIN [Suspect]
     Active Substance: ATORVASTATIN
     Indication: Blood cholesterol increased
     Dates: end: 20221218

REACTIONS (6)
  - Suicidal ideation [Unknown]
  - Intentional self-injury [Recovered/Resolved]
  - Clumsiness [Unknown]
  - Frustration tolerance decreased [Recovered/Resolved]
  - Impulse-control disorder [Unknown]
  - Memory impairment [Recovered/Resolved]

NARRATIVE: CASE EVENT DATE: 20230101
